FAERS Safety Report 5427939-2 (Version None)
Quarter: 2007Q3

REPORT INFORMATION
  Report Type: 
  Country: None (occurrence: None)
  Receive Date: 20070828
  Receipt Date: 20070816
  Transmission Date: 20080115
  Serious: Yes (Other)
  Sender: FDA-Public Use
  Company Number: US-PFIZER INC-2007068278

PATIENT
  Sex: Male
  Weight: 28.1 kg

DRUGS (7)
  1. SUTENT [Suspect]
     Indication: RENAL CELL CARCINOMA STAGE IV
     Dosage: DAILY DOSE:50MG
  2. CODEINE SUL TAB [Concomitant]
  3. TYLENOL (CAPLET) [Concomitant]
  4. METHADONE HCL [Concomitant]
  5. CLONAZEPAM [Concomitant]
  6. MOTRIN [Concomitant]
  7. MECLIZINE [Concomitant]

REACTIONS (6)
  - BLOOD PRESSURE INCREASED [None]
  - CATARACT [None]
  - PRURITUS [None]
  - RED BLOOD CELL COUNT DECREASED [None]
  - WEIGHT INCREASED [None]
  - WHITE BLOOD CELL COUNT DECREASED [None]
